FAERS Safety Report 5177477-X (Version None)
Quarter: 2006Q4

REPORT INFORMATION
  Report Type: 
  Country: None (occurrence: None)
  Receive Date: 20061218
  Receipt Date: 20060723
  Transmission Date: 20070319
  Serious: No
  Sender: FDA-Public Use
  Company Number: US-AMGEN-KDL187497

PATIENT
  Sex: Female

DRUGS (15)
  1. ENBREL [Suspect]
     Indication: PSORIATIC ARTHROPATHY
     Route: 058
     Dates: start: 20050601
  2. ENBREL [Suspect]
     Indication: PSORIASIS
  3. NABUMETONE [Concomitant]
     Route: 048
  4. FLEXERIL [Concomitant]
  5. ALBUTEROL SULATE [Concomitant]
     Route: 055
  6. BETAMETHASONE [Concomitant]
  7. BENZTROPINE MESYLATE [Concomitant]
  8. ATIVAN [Concomitant]
     Route: 048
  9. THIOTHIXENE [Concomitant]
     Route: 048
  10. MIDRIN [Concomitant]
  11. PROCARDIA [Concomitant]
     Route: 048
  12. PRILOSEC [Concomitant]
     Route: 048
  13. LESCOL [Concomitant]
     Route: 048
  14. VICODIN [Concomitant]
  15. BENADRYL [Concomitant]
     Route: 048

REACTIONS (34)
  - ARTHRALGIA [None]
  - BRONCHITIS [None]
  - CHEST PAIN [None]
  - CONDITION AGGRAVATED [None]
  - CONSTIPATION [None]
  - DEAFNESS [None]
  - DRY MOUTH [None]
  - DYSPNOEA [None]
  - FATIGUE [None]
  - GASTROOESOPHAGEAL REFLUX DISEASE [None]
  - JOINT EFFUSION [None]
  - JOINT RANGE OF MOTION DECREASED [None]
  - JOINT SWELLING [None]
  - LEUKOPENIA [None]
  - LIMB DISCOMFORT [None]
  - LIPOMA [None]
  - LYMPHOPENIA [None]
  - MENOPAUSE [None]
  - MIGRAINE [None]
  - MUSCULOSKELETAL STIFFNESS [None]
  - NAUSEA [None]
  - NEUTROPENIA [None]
  - NIGHT SWEATS [None]
  - OSTEOPENIA [None]
  - PAIN IN EXTREMITY [None]
  - PHOTOSENSITIVITY REACTION [None]
  - PSORIASIS [None]
  - PSORIATIC ARTHROPATHY [None]
  - SACROILIITIS [None]
  - SINUSITIS [None]
  - SLEEP DISORDER [None]
  - WEIGHT DECREASED [None]
  - WHITE BLOOD CELL COUNT DECREASED [None]
  - WOUND SECRETION [None]
